FAERS Safety Report 24991010 (Version 1)
Quarter: 2025Q1

REPORT INFORMATION
  Report Type: Spontaneous
  Country: JP (occurrence: JP)
  Receive Date: 20250220
  Receipt Date: 20250220
  Transmission Date: 20250408
  Serious: Yes (Hospitalization)
  Sender: EISAI
  Company Number: JP-Eisai-202415164_LEN-EC_P_1

PATIENT
  Age: 73 Year
  Sex: Female

DRUGS (2)
  1. LENVIMA [Suspect]
     Active Substance: LENVATINIB
     Indication: Endometrial cancer
  2. KEYTRUDA [Suspect]
     Active Substance: PEMBROLIZUMAB
     Indication: Endometrial cancer

REACTIONS (5)
  - Dysarthria [Unknown]
  - Oedema peripheral [Unknown]
  - Muscular weakness [Unknown]
  - Fall [Unknown]
  - Renal disorder [Unknown]

NARRATIVE: CASE EVENT DATE: 20240801
